FAERS Safety Report 14384790 (Version 1)
Quarter: 2018Q1

REPORT INFORMATION
  Report Type: Spontaneous
  Country: FR (occurrence: FR)
  Receive Date: 20180115
  Receipt Date: 20180115
  Transmission Date: 20180509
  Serious: Yes (Other)
  Sender: FDA-Public Use
  Company Number: FR-JNJFOC-20180114114

PATIENT
  Age: 91 Year
  Sex: Female

DRUGS (3)
  1. TIAPRIDAL [Suspect]
     Active Substance: TIAPRIDE HYDROCHLORIDE
     Indication: MENTAL DISORDER
     Route: 048
     Dates: start: 20171130, end: 20171203
  2. RISPERDAL [Suspect]
     Active Substance: RISPERIDONE
     Indication: MENTAL DISORDER
     Dosage: DOSE: 1 CP
     Route: 048
     Dates: start: 20171117, end: 20171129
  3. LANSOPRAZOLE. [Suspect]
     Active Substance: LANSOPRAZOLE
     Indication: ULCER
     Dosage: DOSE: 1 CP
     Route: 048
     Dates: start: 20171128, end: 20171130

REACTIONS (1)
  - Hepatocellular injury [Recovering/Resolving]

NARRATIVE: CASE EVENT DATE: 20171204
